FAERS Safety Report 10056306 (Version 1)
Quarter: 2014Q2

REPORT INFORMATION
  Report Type: Spontaneous
  Country: US (occurrence: US)
  Receive Date: 20140403
  Receipt Date: 20140403
  Transmission Date: 20141212
  Serious: Yes (Other)
  Sender: FDA-Public Use
  Company Number: US-TEVA-472015USA

PATIENT
  Age: 67 Year
  Sex: Female

DRUGS (2)
  1. COPAXONE [Suspect]
     Indication: MULTIPLE SCLEROSIS
     Dates: start: 20000607
  2. DILANTIN [Suspect]

REACTIONS (5)
  - Pneumonia [Unknown]
  - Diverticulitis [Unknown]
  - Wrist fracture [Unknown]
  - Lower limb fracture [Unknown]
  - Overdose [Unknown]
